FAERS Safety Report 10776268 (Version 3)
Quarter: 2015Q1

REPORT INFORMATION
  Report Type: Spontaneous
  Country: CN (occurrence: CN)
  Receive Date: 20150209
  Receipt Date: 20150219
  Transmission Date: 20150721
  Serious: Yes (Other)
  Sender: FDA-Public Use
  Company Number: CN-WATSON-2015-01440

PATIENT
  Age: 17 Year
  Sex: Female

DRUGS (1)
  1. LIDOCAINE (UNKNOWN) [Suspect]
     Active Substance: LIDOCAINE
     Indication: LOCAL ANAESTHESIA
     Dosage: 1 ML, SINGLE(2% CONC)
     Route: 051

REACTIONS (1)
  - Type I hypersensitivity [Recovered/Resolved]
